FAERS Safety Report 25028610 (Version 2)
Quarter: 2025Q3

REPORT INFORMATION
  Report Type: Spontaneous
  Country: US (occurrence: US)
  Receive Date: 20250302
  Receipt Date: 20250824
  Transmission Date: 20251021
  Serious: No
  Sender: SANOFI AVENTIS
  Company Number: US-SA-2025SA061634

PATIENT
  Age: 7 Month
  Sex: Male

DRUGS (2)
  1. DUPIXENT [Suspect]
     Active Substance: DUPILUMAB
     Indication: Dermatitis atopic
     Dosage: 200MG, Q4W
     Route: 058
  2. AMOXICILLIN [Suspect]
     Active Substance: AMOXICILLIN
     Indication: Ear infection
     Dates: start: 20250810

REACTIONS (8)
  - Rash erythematous [Unknown]
  - Miliaria [Unknown]
  - Irritability [Unknown]
  - Infection [Unknown]
  - Skin disorder [Unknown]
  - Upper respiratory tract infection [Unknown]
  - Dermatitis atopic [Unknown]
  - Rash [Unknown]

NARRATIVE: CASE EVENT DATE: 20250816
